FAERS Safety Report 4287296-4 (Version None)
Quarter: 2004Q1

REPORT INFORMATION
  Report Type: 
  Country: None (occurrence: None)
  Receive Date: 20040205
  Receipt Date: 20040126
  Transmission Date: 20041129
  Serious: Yes (Hospitalization)
  Sender: FDA-Public Use
  Company Number: US-SHR-03-008668

PATIENT
  Age: 48 Year
  Sex: Female

DRUGS (6)
  1. BETSERON (INTERFERON BETA-1B) INJECTION [Suspect]
     Indication: MULTIPLE SCLEROSIS
     Dosage: 8 MIU, EVERY 2D, SUBCUTANEOUS
     Route: 058
     Dates: start: 20020201
  2. ESTRACE [Concomitant]
  3. ACIPHEX [Concomitant]
  4. PAXIL [Concomitant]
  5. DIDRONEL ^AVENTIS PHARMA^ (ETIDRONATE DISODIUM) [Concomitant]
  6. NEURONTIN [Concomitant]

REACTIONS (8)
  - BLOOD PRESSURE INCREASED [None]
  - CREPITATIONS [None]
  - DYSPNOEA [None]
  - FACE OEDEMA [None]
  - PHARYNGOLARYNGEAL PAIN [None]
  - RESPIRATORY DISORDER [None]
  - SEPSIS [None]
  - VOMITING [None]
